FAERS Safety Report 4423564-0 (Version None)
Quarter: 2004Q3

REPORT INFORMATION
  Report Type: 
  Country: None (occurrence: None)
  Receive Date: 20040805
  Receipt Date: 20040723
  Transmission Date: 20050211
  Serious: Yes (Hospitalization)
  Sender: FDA-Public Use
  Company Number: GB-JNJFOC-20040706512

PATIENT
  Age: 66 Year
  Sex: Female

DRUGS (9)
  1. REMICADE [Suspect]
     Indication: RHEUMATOID ARTHRITIS
     Dosage: INTRAVENOUS
     Route: 042
     Dates: start: 20020911
  2. METHOTREXATE [Concomitant]
  3. MELOXICAM (MELOXICAM) [Concomitant]
  4. HRT (ANDROGENS AND FEMALE SEX HORMONES IN COMB) [Concomitant]
  5. CO-CODAMOL (PANADEINE CO) [Concomitant]
  6. CARDURA [Concomitant]
  7. BENDROFLUAZIDE (BENDROFLUMETHIAZIDE) [Concomitant]
  8. AMITRIPTYLINE HCL [Concomitant]
  9. PREDNISOLONE [Concomitant]

REACTIONS (1)
  - OVARIAN CYST [None]
